FAERS Safety Report 8815325 (Version 2)
Quarter: 2012Q4

REPORT INFORMATION
  Report Type: 
  Country: US (occurrence: US)
  Receive Date: 20120928
  Receipt Date: 20121029
  Transmission Date: 20130627
  Serious: Yes (Death, Hospitalization)
  Sender: FDA-Public Use
  Company Number: US-B.I. PHARMACEUTICALS,INC./RIDGEFIELD-2012-BP-23512BP

PATIENT
  Sex: Male
  Weight: 108.4 kg

DRUGS (11)
  1. PRADAXA [Suspect]
     Indication: ATRIAL FIBRILLATION
     Dosage: 300 mg
  2. NORVASC [Concomitant]
     Dosage: 10 mg
  3. ATENOLOL [Concomitant]
     Dosage: 100 mg
  4. HUMULIN 70-30 [Concomitant]
  5. HYDROCHLOROTHIAZIDE [Concomitant]
     Dosage: 12.5 mg
  6. LIPITOR [Concomitant]
     Dosage: 20 mg
  7. LISINOPRIL [Concomitant]
     Dosage: 40 mg
  8. VIAGRA [Concomitant]
  9. LYRICA [Concomitant]
     Dosage: 150 mg
  10. PROTONIX [Concomitant]
     Dosage: 40 mg
  11. MULTIVITAMIN [Concomitant]

REACTIONS (1)
  - Cardiac failure congestive [Fatal]
